FAERS Safety Report 22333435 (Version 2)
Quarter: 2023Q2

REPORT INFORMATION
  Report Type: Report from Study
  Country: US (occurrence: US)
  Receive Date: 20230517
  Receipt Date: 20230629
  Transmission Date: 20230721
  Serious: Yes (Other)
  Sender: FDA-Public Use
  Company Number: US-002147023-NVSC2023US110218

PATIENT
  Sex: Female

DRUGS (10)
  1. XIIDRA [Suspect]
     Active Substance: LIFITEGRAST
     Indication: Product used for unknown indication
     Dosage: UNK (BOX 1)
     Route: 047
  2. XIIDRA [Suspect]
     Active Substance: LIFITEGRAST
     Dosage: UNK (BOX 2)
     Route: 047
  3. XIIDRA [Suspect]
     Active Substance: LIFITEGRAST
     Dosage: UNK (BOX 3)
     Route: 047
  4. XIIDRA [Suspect]
     Active Substance: LIFITEGRAST
     Dosage: UNK ((BOX 4)
     Route: 047
  5. XIIDRA [Suspect]
     Active Substance: LIFITEGRAST
     Dosage: UNK (BOX 5)
     Route: 047
  6. XIIDRA [Suspect]
     Active Substance: LIFITEGRAST
     Dosage: UNK (BOX 6)
     Route: 047
  7. FISH OIL [Concomitant]
     Active Substance: FISH OIL
     Indication: Product used for unknown indication
     Dosage: UNK
     Route: 065
  8. LIPITOR [Concomitant]
     Active Substance: ATORVASTATIN CALCIUM
     Indication: Product used for unknown indication
     Dosage: UNK
     Route: 065
  9. DIOVAN [Concomitant]
     Active Substance: VALSARTAN
     Indication: Product used for unknown indication
     Dosage: UNK
     Route: 065
  10. LEVOTHYROXINE [Concomitant]
     Active Substance: LEVOTHYROXINE
     Indication: Product used for unknown indication
     Dosage: UNK
     Route: 065

REACTIONS (4)
  - Brain neoplasm [Unknown]
  - Corneal reflex decreased [Unknown]
  - Visual impairment [Unknown]
  - Expired product administered [Unknown]
